FAERS Safety Report 21589048 (Version 2)
Quarter: 2022Q4

REPORT INFORMATION
  Report Type: Spontaneous
  Country: US (occurrence: US)
  Receive Date: 20221114
  Receipt Date: 20221124
  Transmission Date: 20230113
  Serious: No
  Sender: FDA-Public Use
  Company Number: US-ORGANON-O2211USA001066

PATIENT
  Age: 31 Year
  Sex: Female
  Weight: 68.027 kg

DRUGS (1)
  1. NEXPLANON [Suspect]
     Active Substance: ETONOGESTREL
     Dosage: 68 MILLIGRAM (1 IMPLANT), ONCE
     Route: 059
     Dates: start: 202204, end: 20221102

REACTIONS (2)
  - Device kink [Recovered/Resolved]
  - No adverse event [Unknown]
